FAERS Safety Report 21641501 (Version 4)
Quarter: 2023Q2

REPORT INFORMATION
  Report Type: Spontaneous
  Country: JP (occurrence: JP)
  Receive Date: 20221125
  Receipt Date: 20230426
  Transmission Date: 20230722
  Serious: Yes (Death, Hospitalization, Other)
  Sender: FDA-Public Use
  Company Number: JP-CHUGAI-2022031605

PATIENT
  Age: 85 Year
  Sex: Male

DRUGS (1)
  1. ACTEMRA [Suspect]
     Active Substance: TOCILIZUMAB
     Indication: Rheumatoid arthritis
     Route: 058
     Dates: end: 20220803

REACTIONS (12)
  - Pneumonia aspiration [Fatal]
  - Cardiac failure [Fatal]
  - Pleural effusion [Fatal]
  - Hypoxia [Fatal]
  - Disease progression [Fatal]
  - Herpes zoster [Unknown]
  - Atelectasis [Fatal]
  - Gastrointestinal haemorrhage [Recovered/Resolved]
  - Cellulitis [Recovering/Resolving]
  - Pneumonia [Recovering/Resolving]
  - Iron deficiency anaemia [Recovered/Resolved]
  - Oral herpes [Not Recovered/Not Resolved]

NARRATIVE: CASE EVENT DATE: 20220407
